FAERS Safety Report 23536634 (Version 2)
Quarter: 2024Q2

REPORT INFORMATION
  Report Type: Report from Study
  Country: US (occurrence: US)
  Receive Date: 20240219
  Receipt Date: 20240408
  Transmission Date: 20240716
  Serious: Yes (Other)
  Sender: FDA-Public Use
  Company Number: US-ABBVIE-21K-163-4124423-00

PATIENT
  Age: 66 Year
  Sex: Male
  Weight: 92.986 kg

DRUGS (2)
  1. IMBRUVICA [Suspect]
     Active Substance: IBRUTINIB
     Indication: Chronic lymphocytic leukaemia
     Route: 048
     Dates: start: 202012
  2. IMBRUVICA [Suspect]
     Active Substance: IBRUTINIB
     Indication: Chronic lymphocytic leukaemia
     Route: 048
     Dates: start: 202101

REACTIONS (10)
  - Rash macular [Unknown]
  - Skin cancer [Recovered/Resolved]
  - Staphylococcal sepsis [Recovered/Resolved]
  - Irritable bowel syndrome [Unknown]
  - Tongue ulceration [Unknown]
  - Diarrhoea [Unknown]
  - Nasopharyngitis [Unknown]
  - Atrial fibrillation [Unknown]
  - Unevaluable event [Unknown]
  - Pneumonia [Recovered/Resolved]

NARRATIVE: CASE EVENT DATE: 20181001
